FAERS Safety Report 6847891-2 (Version None)
Quarter: 2010Q3

REPORT INFORMATION
  Report Type: 
  Country: None (occurrence: None)
  Receive Date: 20100716
  Receipt Date: 20100706
  Transmission Date: 20110219
  Serious: Yes (Hospitalization)
  Sender: FDA-Public Use
  Company Number: US-ELI_LILLY_AND_COMPANY-US201005004189

PATIENT
  Sex: Female

DRUGS (3)
  1. PEMETREXED [Suspect]
     Indication: MESOTHELIOMA
     Dosage: 500 MG/M2, OTHER
     Route: 042
     Dates: start: 20100503
  2. CISPLATIN [Suspect]
     Indication: MESOTHELIOMA
     Dosage: 75 MG/M2, OTHER
     Route: 042
     Dates: start: 20100503
  3. VITAMINS [Concomitant]
     Dates: start: 20100421

REACTIONS (6)
  - DEHYDRATION [None]
  - DIARRHOEA [None]
  - HEADACHE [None]
  - HYPONATRAEMIA [None]
  - NAUSEA [None]
  - VOMITING [None]
